FAERS Safety Report 4550171-1 (Version None)
Quarter: 2005Q1

REPORT INFORMATION
  Report Type: 
  Country: None (occurrence: None)
  Receive Date: 20050107
  Receipt Date: 20041229
  Transmission Date: 20050727
  Serious: Yes (Death, Hospitalization, Disabling, Other)
  Sender: FDA-Public Use
  Company Number: AE-304-072

PATIENT
  Sex: Male

DRUGS (1)
  1. LIDODERM [Suspect]
     Indication: PAIN IN EXTREMITY
     Dosage: 1 PATCH

REACTIONS (11)
  - APPLICATION SITE ERYTHEMA [None]
  - APPLICATION SITE OEDEMA [None]
  - APPLICATION SITE REACTION [None]
  - APPLICATION SITE ULCER [None]
  - ASTHENIA [None]
  - DERMATITIS EXFOLIATIVE [None]
  - LEG AMPUTATION [None]
  - PAIN [None]
  - PHARMACEUTICAL PRODUCT COMPLAINT [None]
  - WOUND INFECTION [None]
  - WOUND NECROSIS [None]
